FAERS Safety Report 5702485-7 (Version None)
Quarter: 2008Q2

REPORT INFORMATION
  Report Type: 
  Country: None (occurrence: None)
  Receive Date: 20080410
  Receipt Date: 20080410
  Transmission Date: 20081010
  Serious: Yes (Other)
  Sender: FDA-Public Use
  Company Number: None

PATIENT
  Sex: Male
  Weight: 27.2158 kg

DRUGS (2)
  1. SINGULAIR [Suspect]
     Indication: ASTHMA
     Dosage: 5MG EVERY NIGHT PO
     Route: 048
     Dates: start: 20030414, end: 20080331
  2. SINGULAIR [Suspect]
     Indication: MULTIPLE ALLERGIES
     Dosage: 5MG EVERY NIGHT PO
     Route: 048
     Dates: start: 20030414, end: 20080331

REACTIONS (10)
  - ABNORMAL BEHAVIOUR [None]
  - ANGER [None]
  - ANXIETY [None]
  - ARACHNOID CYST [None]
  - ASPERGER'S DISORDER [None]
  - ATTENTION DEFICIT/HYPERACTIVITY DISORDER [None]
  - DEPRESSION [None]
  - DIABETES INSIPIDUS [None]
  - FRUSTRATION [None]
  - PAIN IN EXTREMITY [None]
